FAERS Safety Report 16107963 (Version 5)
Quarter: 2019Q4

REPORT INFORMATION
  Report Type: Spontaneous
  Country: US (occurrence: US)
  Receive Date: 20190322
  Receipt Date: 20191119
  Transmission Date: 20200122
  Serious: Yes (Death, Other)
  Sender: FDA-Public Use
  Company Number: US-ASTRAZENECA-2018SF22060

PATIENT
  Sex: Female
  Weight: 91.2 kg

DRUGS (21)
  1. LASIX [Concomitant]
     Active Substance: FUROSEMIDE
  2. TAGAMET [Concomitant]
     Active Substance: CIMETIDINE
  3. VIT.B12 [Concomitant]
  4. INSULIN [Concomitant]
     Active Substance: INSULIN NOS
  5. OXYCODONE [Concomitant]
     Active Substance: OXYCODONE
  6. NEXIUM [Suspect]
     Active Substance: ESOMEPRAZOLE MAGNESIUM
     Route: 048
     Dates: start: 1997, end: 2014
  7. NEXIUM 24HR [Suspect]
     Active Substance: ESOMEPRAZOLE MAGNESIUM
     Route: 048
     Dates: start: 1997, end: 2014
  8. PRILOSEC OTC [Suspect]
     Active Substance: OMEPRAZOLE MAGNESIUM
     Route: 048
     Dates: start: 1997, end: 2014
  9. PROTONIX [Suspect]
     Active Substance: PANTOPRAZOLE SODIUM
     Route: 065
     Dates: start: 1997, end: 2014
  10. LISINOPRIL. [Concomitant]
     Active Substance: LISINOPRIL
  11. FAMOTIDINE. [Concomitant]
     Active Substance: FAMOTIDINE
  12. PREVACID [Suspect]
     Active Substance: LANSOPRAZOLE
     Indication: GASTROOESOPHAGEAL REFLUX DISEASE
     Route: 065
     Dates: start: 1997, end: 2014
  13. DEXILANT [Suspect]
     Active Substance: DEXLANSOPRAZOLE
     Route: 065
     Dates: start: 1997, end: 2014
  14. KLONOPIN [Concomitant]
     Active Substance: CLONAZEPAM
  15. VALIUM [Concomitant]
     Active Substance: DIAZEPAM
  16. PREVACID 24 HR [Suspect]
     Active Substance: LANSOPRAZOLE
     Route: 065
     Dates: start: 1997, end: 2014
  17. LIPITOR [Concomitant]
     Active Substance: ATORVASTATIN CALCIUM
  18. MOTRIN [Concomitant]
     Active Substance: IBUPROFEN
  19. ASPIRIN. [Concomitant]
     Active Substance: ASPIRIN
  20. PRILOSEC [Suspect]
     Active Substance: OMEPRAZOLE MAGNESIUM
     Route: 048
     Dates: start: 1997, end: 2014
  21. PREVACID [Suspect]
     Active Substance: LANSOPRAZOLE
     Indication: GASTROOESOPHAGEAL REFLUX DISEASE
     Route: 065
     Dates: start: 1995, end: 2014

REACTIONS (5)
  - End stage renal disease [Unknown]
  - Nephropathy [Unknown]
  - Renal injury [Unknown]
  - Chronic kidney disease [Recovered/Resolved]
  - Acute kidney injury [Unknown]
